FAERS Safety Report 17128955 (Version 1)
Quarter: 2019Q4

REPORT INFORMATION
  Report Type: Spontaneous
  Country: TR (occurrence: TR)
  Receive Date: 20191209
  Receipt Date: 20191209
  Transmission Date: 20200122
  Serious: Yes (Disabling, Other)
  Sender: FDA-Public Use
  Company Number: NVSC2019TR060718

PATIENT
  Age: 35 Year
  Sex: Female

DRUGS (2)
  1. TEGRETOL [Suspect]
     Active Substance: CARBAMAZEPINE
     Indication: NEURALGIA
     Dosage: 200 MG (2X1 OR 3X1) (USED TEGRETOL 200 MG 10 YEARS AGO)
     Route: 048
     Dates: start: 2009
  2. TRILEPTAL [Suspect]
     Active Substance: OXCARBAZEPINE
     Indication: NEURALGIA
     Dosage: 600 MG (4X1)
     Route: 048

REACTIONS (5)
  - Off label use [Unknown]
  - Physical disability [Unknown]
  - Aphasia [Unknown]
  - Foaming at mouth [Unknown]
  - Toxicity to various agents [Unknown]
